FAERS Safety Report 8436671-2 (Version None)
Quarter: 2012Q2

REPORT INFORMATION
  Report Type: 
  Country: None (occurrence: None)
  Receive Date: 20120614
  Receipt Date: 20120607
  Transmission Date: 20120825
  Serious: No
  Sender: FDA-Public Use
  Company Number: US-ASTRAZENECA-2010SE00267

PATIENT
  Age: 64 Year
  Sex: Male
  Weight: 112.9 kg

DRUGS (12)
  1. LEXAPRO [Concomitant]
  2. SEROQUEL [Suspect]
     Route: 048
  3. SEROQUEL [Suspect]
     Dosage: 1 TABLET IN THE MORNING AND ONE AND A HALF AT BEDTIME
     Route: 048
  4. SEROQUEL [Suspect]
     Indication: ANXIETY
     Route: 048
  5. DICYCLOMINE [Concomitant]
  6. LORAZEPAM [Concomitant]
  7. SEROQUEL [Suspect]
     Indication: AGITATION
     Route: 048
  8. SEROQUEL [Suspect]
     Dosage: 1 TABLET IN THE MORNING AND ONE AND A HALF AT BEDTIME
     Route: 048
  9. SEROQUEL [Suspect]
     Dosage: 1 TABLET IN THE MORNING AND ONE AND A HALF AT BEDTIME
     Route: 048
  10. SEROQUEL [Suspect]
     Indication: DEPRESSION
     Route: 048
  11. SEROQUEL [Suspect]
     Route: 048
  12. SEROQUEL [Suspect]
     Route: 048

REACTIONS (23)
  - JOINT INJURY [None]
  - FEELING OF DESPAIR [None]
  - DEPRESSION [None]
  - DRUG DOSE OMISSION [None]
  - COLONIC POLYP [None]
  - ACTIVITIES OF DAILY LIVING IMPAIRED [None]
  - SOMNOLENCE [None]
  - FALL [None]
  - DEPRESSED MOOD [None]
  - EMOTIONAL DISTRESS [None]
  - HYPERSOMNIA [None]
  - JOINT HYPEREXTENSION [None]
  - ANXIETY [None]
  - EAR PAIN [None]
  - HEPATITIS C [None]
  - HAEMOCHROMATOSIS [None]
  - MENTAL DISORDER [None]
  - INTENTIONAL DRUG MISUSE [None]
  - DIPLOPIA [None]
  - ADVERSE EVENT [None]
  - DIZZINESS [None]
  - THROMBOCYTOPENIA [None]
  - IRRITABILITY [None]
